FAERS Safety Report 10387546 (Version 1)
Quarter: 2014Q3

REPORT INFORMATION
  Report Type: Spontaneous
  Country: US (occurrence: US)
  Receive Date: 20140815
  Receipt Date: 20140815
  Transmission Date: 20150326
  Serious: Yes (Congenital Anomaly, Other)
  Sender: FDA-Public Use
  Company Number: US-ABBVIE-14P-163-1271827-00

PATIENT
  Sex: Female

DRUGS (1)
  1. DEPAKOTE [Suspect]
     Active Substance: DIVALPROEX SODIUM
     Indication: MATERNAL EXPOSURE TIMING UNSPECIFIED
     Route: 064

REACTIONS (9)
  - Developmental delay [Unknown]
  - Foetal exposure during pregnancy [Unknown]
  - Deformity [Unknown]
  - Pain [Unknown]
  - Cardiac murmur [Unknown]
  - Emotional distress [Unknown]
  - Anhedonia [Unknown]
  - Multiple injuries [Unknown]
  - Tension [Unknown]
